FAERS Safety Report 26104374 (Version 1)
Quarter: 2025Q4

REPORT INFORMATION
  Report Type: Spontaneous
  Country: US (occurrence: US)
  Receive Date: 20251130
  Receipt Date: 20251130
  Transmission Date: 20260117
  Serious: No
  Sender: TEVA
  Company Number: US-TEVA-VS-3392418

PATIENT
  Age: 71 Year
  Sex: Female

DRUGS (2)
  1. ROSUVASTATIN [Suspect]
     Active Substance: ROSUVASTATIN
     Indication: Product used for unknown indication
     Route: 065
  2. DUPIXENT [Suspect]
     Active Substance: DUPILUMAB
     Indication: Eosinophilic oesophagitis
     Dosage: STRENGTH : 300MG/2ML
     Route: 058

REACTIONS (4)
  - Myopathy [Unknown]
  - Gait inability [Unknown]
  - Eye discharge [Unknown]
  - Tendonitis [Unknown]
